FAERS Safety Report 17942240 (Version 1)
Quarter: 2020Q2

REPORT INFORMATION
  Report Type: Spontaneous
  Country: US (occurrence: US)
  Receive Date: 20200625
  Receipt Date: 20200625
  Transmission Date: 20200714
  Serious: No
  Sender: FDA-Public Use
  Company Number: None

PATIENT
  Age: 24 Year
  Sex: Female
  Weight: 72 kg

DRUGS (5)
  1. TRI-PREVIFEM [Concomitant]
     Active Substance: ETHINYL ESTRADIOL\NORGESTIMATE
  2. VITAMIN C [Concomitant]
     Active Substance: ASCORBIC ACID
  3. LEVOTHYROXINE. [Concomitant]
     Active Substance: LEVOTHYROXINE
  4. FISH OIL [Concomitant]
     Active Substance: FISH OIL
  5. ZYRTEC ALLERGY [Suspect]
     Active Substance: CETIRIZINE HYDROCHLORIDE
     Indication: SEASONAL ALLERGY
     Dosage: ?          QUANTITY:1 TABLET(S);?
     Route: 048
     Dates: start: 20160601, end: 20200622

REACTIONS (4)
  - Disturbance in attention [None]
  - Pruritus [None]
  - Sleep disorder [None]
  - Withdrawal syndrome [None]

NARRATIVE: CASE EVENT DATE: 20200622
